FAERS Safety Report 20324444 (Version 1)
Quarter: 2022Q1

REPORT INFORMATION
  Report Type: Other
  Country: None (occurrence: BE)
  Receive Date: 20220111
  Receipt Date: 20220111
  Transmission Date: 20220423
  Serious: Yes (Other)
  Sender: FDA-Public Use
  Company Number: BE-ALSI-2021000451

PATIENT
  Age: 19 Year
  Sex: Male

DRUGS (1)
  1. NITROUS OXIDE [Suspect]
     Active Substance: NITROUS OXIDE
     Indication: Drug abuse
     Route: 055

REACTIONS (1)
  - Myelopathy [Recovered/Resolved]
